FAERS Safety Report 13420744 (Version 1)
Quarter: 2017Q2

REPORT INFORMATION
  Report Type: Spontaneous
  Country: US (occurrence: US)
  Receive Date: 20170409
  Receipt Date: 20170409
  Transmission Date: 20170830
  Serious: Yes (Other)
  Sender: FDA-Public Use
  Company Number: US-MYLANLABS-2017M1021103

PATIENT

DRUGS (1)
  1. CALCITONIN SALMON. [Suspect]
     Active Substance: CALCITONIN SALMON
     Indication: BONE GIANT CELL TUMOUR BENIGN
     Dosage: 100 IU, HS
     Route: 058

REACTIONS (5)
  - Drug administered to patient of inappropriate age [Unknown]
  - Disease progression [Unknown]
  - Bone giant cell tumour benign [Unknown]
  - Treatment failure [Unknown]
  - Product use issue [Unknown]
